FAERS Safety Report 4373494-8 (Version None)
Quarter: 2004Q1

REPORT INFORMATION
  Report Type: 
  Country: None (occurrence: None)
  Receive Date: 20040305
  Receipt Date: 20040126
  Transmission Date: 20041129
  Serious: Yes (Other)
  Sender: FDA-Public Use
  Company Number: 2004UW01374

PATIENT
  Age: 64 Year
  Sex: Female
  Weight: 70.3075 kg

DRUGS (4)
  1. CRESTOR [Suspect]
     Indication: HYPERCHOLESTEROLAEMIA
     Dosage: 10 MG QD PO
     Route: 048
  2. LOPRESSOR [Concomitant]
  3. CELEBREX [Concomitant]
  4. MULTI-VITAMINS [Concomitant]

REACTIONS (3)
  - DRY MOUTH [None]
  - INSOMNIA [None]
  - NASAL CONGESTION [None]
